FAERS Safety Report 8525841-0 (Version None)
Quarter: 2012Q3

REPORT INFORMATION
  Report Type: 
  Country: None (occurrence: None)
  Receive Date: 20120720
  Receipt Date: 20120712
  Transmission Date: 20120928
  Serious: Yes (Hospitalization)
  Sender: FDA-Public Use
  Company Number: US-ELI_LILLY_AND_COMPANY-US201203006525

PATIENT
  Sex: Female

DRUGS (11)
  1. FORTEO [Suspect]
     Indication: OSTEOPOROSIS
     Dosage: 20 UG, QD
     Route: 065
     Dates: start: 20120312
  2. LEVOTHYROXINE SODIUM [Concomitant]
     Indication: THYROID DISORDER
  3. FORTEO [Suspect]
     Dosage: 20 UG, QD
     Route: 065
  4. FORTEO [Suspect]
     Dosage: 20 UG, QD
     Dates: end: 20120610
  5. CALCIUM [Concomitant]
  6. DYAZIDE [Concomitant]
     Dosage: UNK
     Dates: end: 20120408
  7. FORTEO [Suspect]
     Dosage: 20 UG, QD
     Route: 065
  8. LIPITOR [Concomitant]
     Dosage: UNK
  9. FORTEO [Suspect]
     Dosage: 20 UG, QD
     Route: 065
  10. ASPIRIN [Concomitant]
  11. ASCORBIC ACID [Concomitant]

REACTIONS (6)
  - INJECTION SITE HAEMORRHAGE [None]
  - PERIPHERAL COLDNESS [None]
  - HOSPITALISATION [None]
  - INJECTION SITE ERYTHEMA [None]
  - HEART RATE INCREASED [None]
  - ATRIAL FIBRILLATION [None]
